FAERS Safety Report 16558615 (Version 2)
Quarter: 2019Q3

REPORT INFORMATION
  Report Type: Spontaneous
  Country: NG (occurrence: NG)
  Receive Date: 20190711
  Receipt Date: 20190712
  Transmission Date: 20191004
  Serious: Yes (Death, Hospitalization)
  Sender: FDA-Public Use
  Company Number: NG-JNJFOC-20190636455

PATIENT
  Sex: Male
  Weight: 51 kg

DRUGS (4)
  1. PREDNISOLONE. [Suspect]
     Active Substance: PREDNISOLONE
     Indication: SUPPORTIVE CARE
     Route: 065
     Dates: start: 20190625
  2. P ALAXIN [Suspect]
     Active Substance: ARTENIMOL\PIPERAQUINE PHOSPHATE
     Indication: MALARIA PROPHYLAXIS
     Dosage: 3-3-2 DAILY
     Route: 065
     Dates: start: 20140623
  3. ROCEPHIN [Concomitant]
     Active Substance: CEFTRIAXONE SODIUM
     Indication: ANTIBIOTIC THERAPY
     Route: 042
     Dates: start: 20190614
  4. ABIRATERONE ACETATE. [Suspect]
     Active Substance: ABIRATERONE ACETATE
     Indication: PROSTATE CANCER METASTATIC
     Route: 048
     Dates: start: 20190625, end: 20190625

REACTIONS (8)
  - Death [Fatal]
  - Respiratory failure [Fatal]
  - Off label use [Unknown]
  - Hypocalcaemia [Fatal]
  - Thrombocytopenia [Fatal]
  - Hypoalbuminaemia [Fatal]
  - Incorrect route of product administration [Unknown]
  - Seizure [Fatal]
